FAERS Safety Report 11146153 (Version 7)
Quarter: 2015Q4

REPORT INFORMATION
  Report Type: Report from Study
  Country: US (occurrence: US)
  Receive Date: 20150528
  Receipt Date: 20151021
  Transmission Date: 20160304
  Serious: Yes (Hospitalization)
  Sender: FDA-Public Use
  Company Number: US-JNJFOC-20150518754

PATIENT
  Age: 73 Year
  Sex: Female
  Weight: 55 kg

DRUGS (17)
  1. RITUXAN [Concomitant]
     Active Substance: RITUXIMAB
  2. OMEGA 3 [Concomitant]
     Active Substance: OMEGA-3 FATTY ACIDS
     Route: 048
  3. AMLODIPINE [Concomitant]
     Active Substance: AMLODIPINE BESYLATE
     Route: 048
  4. FOLIC ACID. [Concomitant]
     Active Substance: FOLIC ACID
     Route: 048
  5. MULTIVITAMIN WITH MINERALS [Concomitant]
     Active Substance: MINERALS\VITAMINS
     Dosage: 1DF, QD
     Route: 048
  6. VITAMIN C [Concomitant]
     Active Substance: ASCORBIC ACID
     Route: 048
  7. CALCIUM ACETATE. [Concomitant]
     Active Substance: CALCIUM ACETATE
  8. SYNTHROID [Concomitant]
     Active Substance: LEVOTHYROXINE SODIUM
     Route: 048
  9. HYDROCHLOROTHIAZIDE WITH TRIAMTERENE [Concomitant]
     Active Substance: HYDROCHLOROTHIAZIDE\TRIAMTERENE
     Dosage: 1DF, (25/37.5) QD
     Route: 048
  10. SIMVASTATIN. [Concomitant]
     Active Substance: SIMVASTATIN
     Route: 048
  11. TRAZODONE [Concomitant]
     Active Substance: TRAZODONE HYDROCHLORIDE
     Route: 048
  12. LOSARTAN. [Concomitant]
     Active Substance: LOSARTAN
     Route: 048
  13. PANTOPRAZOLE [Concomitant]
     Active Substance: PANTOPRAZOLE SODIUM
     Route: 048
  14. IMBRUVICA [Suspect]
     Active Substance: IBRUTINIB
     Indication: CHRONIC LYMPHOCYTIC LEUKAEMIA
     Route: 048
     Dates: start: 20140904
  15. IMMUNOGLOBULIN [Concomitant]
     Active Substance: HUMAN IMMUNOGLOBULIN G
  16. MONTELUKAST [Concomitant]
     Active Substance: MONTELUKAST SODIUM
     Route: 048
  17. VITAMIN D3 [Concomitant]
     Active Substance: CHOLECALCIFEROL
     Dosage: 400 UNIT, QD
     Route: 048

REACTIONS (15)
  - Peripheral swelling [Not Recovered/Not Resolved]
  - Gingival pain [Not Recovered/Not Resolved]
  - Abdominal discomfort [Unknown]
  - Gingival bleeding [Unknown]
  - Contusion [Recovered/Resolved]
  - Tooth disorder [Unknown]
  - Gingival erythema [Unknown]
  - Platelet count decreased [Not Recovered/Not Resolved]
  - Sinus disorder [Unknown]
  - Petechiae [Unknown]
  - Joint swelling [Unknown]
  - Mass [Recovered/Resolved]
  - Sinusitis [Unknown]
  - White blood cell count increased [Unknown]
  - Gingival swelling [Unknown]

NARRATIVE: CASE EVENT DATE: 201504
